FAERS Safety Report 10528845 (Version 1)
Quarter: 2014Q4

REPORT INFORMATION
  Report Type: Spontaneous
  Country: FR (occurrence: FR)
  Receive Date: 20141020
  Receipt Date: 20141020
  Transmission Date: 20150528
  Serious: Yes (Life-Threatening, Other)
  Sender: FDA-Public Use
  Company Number: FR-PFIZER INC-2014282501

PATIENT
  Age: 49 Year
  Sex: Male

DRUGS (17)
  1. LASILIX [Suspect]
     Active Substance: FUROSEMIDE
     Indication: RESPIRATORY DISTRESS
  2. ADVIL [Suspect]
     Active Substance: IBUPROFEN
     Indication: THROAT IRRITATION
     Dosage: 400 MG, SINGLE
     Route: 048
     Dates: start: 20140823, end: 20140823
  3. NALOXONE [Suspect]
     Active Substance: NALOXONE
     Indication: LARYNGEAL DYSPNOEA
  4. EPINEPHRINE. [Suspect]
     Active Substance: EPINEPHRINE
     Indication: LOSS OF CONSCIOUSNESS
     Dosage: UNK
     Dates: start: 201408
  5. EPINEPHRINE. [Suspect]
     Active Substance: EPINEPHRINE
     Indication: RESPIRATORY DISTRESS
  6. VALIUM [Suspect]
     Active Substance: DIAZEPAM
     Indication: LARYNGEAL DYSPNOEA
  7. EPINEPHRINE. [Suspect]
     Active Substance: EPINEPHRINE
     Indication: LARYNGEAL DYSPNOEA
  8. NALOXONE [Suspect]
     Active Substance: NALOXONE
     Indication: RESPIRATORY DISTRESS
  9. LASILIX [Suspect]
     Active Substance: FUROSEMIDE
     Indication: LOSS OF CONSCIOUSNESS
     Dosage: UNK
     Dates: start: 201408
  10. SOLU-MEDROL [Suspect]
     Active Substance: METHYLPREDNISOLONE SODIUM SUCCINATE
     Indication: LARYNGEAL DYSPNOEA
  11. LYSOPAINE [Suspect]
     Active Substance: CETYLPYRIDINIUM CHLORIDE\LYSOZYME HYDROCHLORIDE
     Indication: THROAT IRRITATION
     Dosage: 1 DF, 2X/DAY
     Route: 048
     Dates: start: 20140823, end: 20140823
  12. SOLU-MEDROL [Suspect]
     Active Substance: METHYLPREDNISOLONE SODIUM SUCCINATE
     Indication: LOSS OF CONSCIOUSNESS
     Dosage: 120 MG, 1X/DAY
     Dates: start: 201408
  13. SOLU-MEDROL [Suspect]
     Active Substance: METHYLPREDNISOLONE SODIUM SUCCINATE
     Indication: RESPIRATORY DISTRESS
  14. NALOXONE [Suspect]
     Active Substance: NALOXONE
     Indication: LOSS OF CONSCIOUSNESS
     Dosage: UNK
     Dates: start: 201408
  15. LASILIX [Suspect]
     Active Substance: FUROSEMIDE
     Indication: LARYNGEAL DYSPNOEA
  16. VALIUM [Suspect]
     Active Substance: DIAZEPAM
     Indication: LOSS OF CONSCIOUSNESS
     Dosage: UNK
     Dates: start: 201408
  17. VALIUM [Suspect]
     Active Substance: DIAZEPAM
     Indication: RESPIRATORY DISTRESS

REACTIONS (17)
  - Laryngeal oedema [Recovered/Resolved]
  - Pleural effusion [Recovered/Resolved]
  - Drug ineffective [Unknown]
  - Extrapyramidal disorder [Unknown]
  - Viral infection [Recovered/Resolved]
  - Dysphagia [Unknown]
  - Hypoglossal nerve disorder [Unknown]
  - Parotitis [Recovered/Resolved]
  - Muscle contractions involuntary [Unknown]
  - Sialoadenitis [Recovered/Resolved]
  - Endotracheal intubation complication [Unknown]
  - Respiratory distress [Recovered/Resolved]
  - Loss of consciousness [Recovered/Resolved]
  - Epiglottitis [Unknown]
  - Tongue paralysis [Unknown]
  - Hepatomegaly [Recovered/Resolved]
  - Liver tenderness [Recovered/Resolved]

NARRATIVE: CASE EVENT DATE: 201408
